FAERS Safety Report 9422665 (Version 15)
Quarter: 2016Q1

REPORT INFORMATION
  Report Type: Spontaneous
  Country: CA (occurrence: CA)
  Receive Date: 20130726
  Receipt Date: 20160303
  Transmission Date: 20160526
  Serious: Yes (Hospitalization, Other)
  Sender: FDA-Public Use
  Company Number: CA-ROCHE-1252541

PATIENT
  Age: 23 Year
  Sex: Female

DRUGS (9)
  1. OMNARIS [Concomitant]
     Active Substance: CICLESONIDE
     Route: 065
  2. XOLAIR [Suspect]
     Active Substance: OMALIZUMAB
     Route: 058
     Dates: start: 20130911
  3. XOLAIR [Suspect]
     Active Substance: OMALIZUMAB
     Route: 058
     Dates: start: 20140430
  4. SYMBICORT [Concomitant]
     Active Substance: BUDESONIDE\FORMOTEROL FUMARATE DIHYDRATE
     Route: 065
  5. UNIPHYL [Concomitant]
     Active Substance: THEOPHYLLINE ANHYDROUS
     Route: 065
  6. XOLAIR [Suspect]
     Active Substance: OMALIZUMAB
     Indication: ASTHMA
     Route: 058
     Dates: start: 20120725
  7. XOLAIR [Suspect]
     Active Substance: OMALIZUMAB
     Route: 058
     Dates: start: 20131120
  8. XOLAIR [Suspect]
     Active Substance: OMALIZUMAB
     Route: 058
     Dates: start: 20140514
  9. XOLAIR [Suspect]
     Active Substance: OMALIZUMAB
     Route: 058
     Dates: start: 20140702

REACTIONS (19)
  - Lower respiratory tract infection [Unknown]
  - Sinusitis [Unknown]
  - Hypersensitivity [Unknown]
  - Nasal congestion [Unknown]
  - Pulmonary congestion [Unknown]
  - Cough [Unknown]
  - Asthma [Unknown]
  - Rhinorrhoea [Unknown]
  - Nasopharyngitis [Recovering/Resolving]
  - Wheezing [Not Recovered/Not Resolved]
  - Weight increased [Unknown]
  - Pneumonia [Unknown]
  - Nasal polyps [Unknown]
  - Respiratory disorder [Not Recovered/Not Resolved]
  - Middle insomnia [Unknown]
  - Reversible airways obstruction [Unknown]
  - Pharyngitis [Recovering/Resolving]
  - Weight decreased [Unknown]
  - Oropharyngeal pain [Unknown]

NARRATIVE: CASE EVENT DATE: 20130711
